FAERS Safety Report 24044208 (Version 2)
Quarter: 2025Q1

REPORT INFORMATION
  Report Type: Report from Study
  Country: ZA (occurrence: ZA)
  Receive Date: 20240703
  Receipt Date: 20250201
  Transmission Date: 20250409
  Serious: Yes (Hospitalization)
  Sender: ABBVIE
  Company Number: ZA-ABBOTT-2024A-1383462

PATIENT
  Age: 77 Year
  Sex: Female

DRUGS (14)
  1. FENOFIBRATE [Suspect]
     Active Substance: FENOFIBRATE
     Indication: Blood cholesterol
     Route: 048
  2. PROPRANOLOL HYDROCHLORIDE [Concomitant]
     Active Substance: PROPRANOLOL HYDROCHLORIDE
     Indication: Cardiac disorder
     Dosage: 10 MG TAKE ONE TABLET ORALLY DAILY AT NIGHT
     Route: 048
  3. CALCIUM\CHOLECALCIFEROL\COPPER\MAGNESIUM\MANGANESE\ZINC [Concomitant]
     Active Substance: CALCIUM\CHOLECALCIFEROL\COPPER\MAGNESIUM\MANGANESE\ZINC
     Indication: Product used for unknown indication
     Dosage: TAKE ONE TABLET DAILY ORALLY
     Route: 048
  4. ACETAMINOPHEN\CODEINE\IBUPROFEN [Concomitant]
     Active Substance: ACETAMINOPHEN\CODEINE\IBUPROFEN
     Indication: Product used for unknown indication
     Dosage: TAKE ONE TABLET THREE TIMES A DAY
     Route: 048
  5. RIVAROXABAN [Concomitant]
     Active Substance: RIVAROXABAN
     Indication: Blood disorder
     Dosage: 15 MG DIRECTIONS TAKE ONE TABLET ORALLY DAILY
     Route: 048
  6. ACETYLCYSTEINE [Concomitant]
     Active Substance: ACETYLCYSTEINE
     Indication: Product used for unknown indication
     Route: 048
  7. MOMETASONE FUROATE [Concomitant]
     Active Substance: MOMETASONE FUROATE
     Indication: Seasonal allergy
     Route: 045
  8. MONTELUKAST SODIUM [Concomitant]
     Active Substance: MONTELUKAST SODIUM
     Indication: Asthma
     Dosage: TAKE ONE TABLET ORALLY DAILY
     Route: 048
  9. DESLORATADINE [Concomitant]
     Active Substance: DESLORATADINE
     Indication: Anaphylactic reaction
     Dosage: 5 MG TAKE ONE TABLET DAILY
     Route: 048
  10. NEUROBION [Concomitant]
     Active Substance: CYANOCOBALAMIN\PYRIDOXINE\THIAMINE
     Indication: Product used for unknown indication
     Dosage: TAKE ONE TABLET DAILY ORALLY
     Route: 048
  11. SALEX [Concomitant]
     Active Substance: SALICYLIC ACID
     Indication: Product used for unknown indication
     Route: 045
  12. GABAPENTIN [Concomitant]
     Active Substance: GABAPENTIN
     Indication: Epilepsy
     Dosage: 100 MG DIRECTIONS TAKE ONE TAKE ONE CAPSULE ORALLY THREE TIMES A DAY
     Route: 048
  13. ESOMEPRAZOLE [Concomitant]
     Active Substance: ESOMEPRAZOLE
     Indication: Gastrinoma
     Dosage: TAKE ONE TABLET ORALLY DAILY IN THE MORNING
     Route: 048
  14. ESCITALOPRAM [Concomitant]
     Active Substance: ESCITALOPRAM OXALATE
     Indication: Obsessive-compulsive disorder
     Dosage: 10 MG DIRECTIONS TAKE ONE TABLET ORALLY TAKE ONE IN THE MORNING
     Route: 048

REACTIONS (1)
  - COVID-19 [Unknown]
